FAERS Safety Report 5872458-2 (Version None)
Quarter: 2008Q3

REPORT INFORMATION
  Report Type: 
  Country: None (occurrence: None)
  Receive Date: 20080902
  Receipt Date: 20080821
  Transmission Date: 20090109
  Serious: Yes (Hospitalization)
  Sender: FDA-Public Use
  Company Number: 2008SP017309

PATIENT
  Age: 40 Year
  Sex: Male

DRUGS (5)
  1. RIBAVIRIN [Suspect]
     Indication: HEPATITIS C
     Dates: start: 20061101
  2. TENOFOVIR DISOPROXIL FUMARATE [Suspect]
     Indication: HIV INFECTION
     Dosage: 300 MG; QD;
  3. PEGYLATED INTERFERON (PEGINTERFERON ALFA-2A) [Suspect]
     Indication: HEPATITIS C
     Dates: start: 20061101
  4. EFAVIRENZ [Concomitant]
  5. EMITRICITABINE [Concomitant]

REACTIONS (8)
  - ANAEMIA [None]
  - ASTHENIA [None]
  - DYSPNOEA [None]
  - FOCAL SEGMENTAL GLOMERULOSCLEROSIS [None]
  - METABOLIC ACIDOSIS [None]
  - NEPHROPATHY [None]
  - RENAL FAILURE [None]
  - RENAL TUBULAR DISORDER [None]
